FAERS Safety Report 18779998 (Version 1)
Quarter: 2021Q1

REPORT INFORMATION
  Report Type: Spontaneous
  Country: US (occurrence: US)
  Receive Date: 20210125
  Receipt Date: 20210125
  Transmission Date: 20210419
  Serious: No
  Sender: FDA-Public Use
  Company Number: US-PFIZER INC-2020482154

PATIENT
  Age: 77 Year
  Sex: Female
  Weight: 68.04 kg

DRUGS (2)
  1. GENOTROPIN [Suspect]
     Active Substance: SOMATROPIN
     Indication: NERVE INJURY
     Dosage: 0.6 MG FOUR TIMES A WEEK
  2. GENOTROPIN [Suspect]
     Active Substance: SOMATROPIN
     Indication: HYPOTHALAMO-PITUITARY DISORDER

REACTIONS (8)
  - Fatigue [Recovering/Resolving]
  - Cognitive disorder [Unknown]
  - Hypersomnia [Unknown]
  - Illness [Unknown]
  - Off label use [Unknown]
  - Chronic disease [Unknown]
  - Stress [Unknown]
  - Vitamin D decreased [Unknown]
